FAERS Safety Report 7381256-2 (Version None)
Quarter: 2011Q1

REPORT INFORMATION
  Report Type: 
  Country: None (occurrence: None)
  Receive Date: 20110329
  Receipt Date: 20110321
  Transmission Date: 20110831
  Serious: Yes (Hospitalization, Other)
  Sender: FDA-Public Use
  Company Number: PR-ALEXION-A201100174

PATIENT
  Sex: Female
  Weight: 19 kg

DRUGS (14)
  1. SOLIRIS [Suspect]
     Indication: HAEMOLYTIC URAEMIC SYNDROME
     Dosage: 600 MG, QW ONCE
     Route: 042
     Dates: start: 20100819, end: 20100801
  2. SOLIRIS [Suspect]
     Dosage: 300 MG, Q2W
     Route: 042
     Dates: start: 20100801, end: 20101101
  3. HYDROCHLOROTHIAZIDE [Concomitant]
     Indication: HYPERTENSION
     Dosage: 6.25 MG, BID
     Route: 048
  4. LABETALOL [Concomitant]
     Indication: HYPERTENSION
     Dosage: 300 MG, BID
     Route: 048
  5. CALCIUM CARBONATE [Concomitant]
     Dosage: 850 MG, 4XDAY
     Route: 048
  6. ZANTAC                             /00550802/ [Concomitant]
     Dosage: 45 MG, BID
     Route: 048
  7. COZAAR [Concomitant]
     Indication: HYPERTENSION
     Dosage: 25 MG, Q4HR
     Route: 048
  8. NORVASC [Suspect]
     Indication: HYPERTENSION
     Dosage: 7.5 MG, BID
     Route: 048
     Dates: end: 20110211
  9. SYNTHROID [Concomitant]
     Indication: HYPOTHYROIDISM
     Dosage: 25 MCG, QD
     Route: 048
  10. LASIX [Concomitant]
     Indication: HYPERTENSION
     Dosage: 20 MG, QD
     Route: 048
  11. HYDRALAZINE HCL [Concomitant]
     Indication: HYPERTENSION
     Dosage: 25 MG, 4XDAY
     Route: 048
  12. SOLIRIS [Suspect]
     Dosage: 600 MG, Q2W
     Route: 042
     Dates: start: 20101101
  13. CLONIDINE [Concomitant]
     Indication: HYPERTENSION
     Dosage: 23 MG, QW
     Route: 062
  14. SOLIRIS [Suspect]
     Dosage: 600 MG, QW ONCE
     Dates: start: 20101101, end: 20101101

REACTIONS (15)
  - PLATELET COUNT DECREASED [None]
  - PERICARDIAL EFFUSION [None]
  - HYPERTENSIVE CRISIS [None]
  - ABDOMINAL DISTENSION [None]
  - CARBON DIOXIDE DECREASED [None]
  - BLOOD UREA INCREASED [None]
  - INCORRECT DOSE ADMINISTERED [None]
  - HAEMOLYTIC URAEMIC SYNDROME [None]
  - CONDITION AGGRAVATED [None]
  - ANAEMIA [None]
  - DRUG ADMINISTRATION ERROR [None]
  - BLOOD SODIUM INCREASED [None]
  - BLOOD SODIUM DECREASED [None]
  - URINARY TRACT INFECTION [None]
  - BLOOD POTASSIUM INCREASED [None]
